FAERS Safety Report 7709392 (Version 3)
Quarter: 2013Q1

REPORT INFORMATION
  Report Type: Spontaneous
  Country: US (occurrence: US)
  Receive Date: 20101214
  Receipt Date: 20130328
  Transmission Date: 20140127
  Serious: No
  Sender: FDA-Public Use
  Company Number: US-ASTRAZENECA-2010SE34801

PATIENT
  Age: 73 Year
  Sex: Female
  Weight: 56.7 kg

DRUGS (12)
  1. CRESTOR [Suspect]
     Indication: BLOOD CHOLESTEROL ABNORMAL
     Dosage: DAILY
     Route: 048
     Dates: end: 201007
  2. CRESTOR [Suspect]
     Indication: BLOOD CHOLESTEROL INCREASED
     Dosage: DAILY
     Route: 048
     Dates: end: 201007
  3. CRESTOR [Suspect]
     Indication: BLOOD CHOLESTEROL ABNORMAL
     Route: 048
     Dates: start: 2012
  4. CRESTOR [Suspect]
     Indication: BLOOD CHOLESTEROL INCREASED
     Route: 048
     Dates: start: 2012
  5. PLAVIX [Suspect]
     Route: 048
  6. LOVAZA [Concomitant]
     Indication: HYPERTENSION
  7. HYZAAR [Concomitant]
  8. PREVACID [Concomitant]
     Indication: GASTROOESOPHAGEAL REFLUX DISEASE
  9. PROPANOLOL [Concomitant]
     Indication: HYPERTENSION
  10. LOSARTAN - HYDROCHLORTHIAZIDE [Concomitant]
     Indication: HYPERTENSION
  11. FOLIC ACID [Concomitant]
  12. ASPIRIN [Concomitant]

REACTIONS (5)
  - Purple glove syndrome [Unknown]
  - Blood calcium increased [Unknown]
  - Pyrexia [Unknown]
  - Pruritus generalised [Unknown]
  - Rash [Unknown]
